FAERS Safety Report 17235997 (Version 1)
Quarter: 2020Q1

REPORT INFORMATION
  Report Type: Spontaneous
  Country: US (occurrence: US)
  Receive Date: 20200106
  Receipt Date: 20200106
  Transmission Date: 20200409
  Serious: No
  Sender: FDA-Public Use
  Company Number: US-009507513-2001USA001050

PATIENT

DRUGS (1)
  1. PRINIVIL [Suspect]
     Active Substance: LISINOPRIL
     Dosage: UNK

REACTIONS (1)
  - Cough [Unknown]
